FAERS Safety Report 25191580 (Version 1)
Quarter: 2025Q2

REPORT INFORMATION
  Report Type: Spontaneous
  Country: US (occurrence: None)
  Receive Date: 20250411
  Receipt Date: 20250411
  Transmission Date: 20250716
  Serious: Yes (unspecified)
  Sender: FDA-CTU
  Company Number: None

PATIENT
  Age: 64 Year
  Sex: Female

DRUGS (2)
  1. JAKAFI [Suspect]
     Active Substance: RUXOLITINIB
     Dosage: 1 MG TWICE A DAY ORAL ?
     Route: 048
  2. JAKAFI [Concomitant]
     Active Substance: RUXOLITINIB
     Dates: start: 20240605, end: 20250301

REACTIONS (5)
  - Dyspnoea [None]
  - Fatigue [None]
  - Dizziness [None]
  - Depression [None]
  - Anaemia [None]

NARRATIVE: CASE EVENT DATE: 20250411
